FAERS Safety Report 7292692-7 (Version None)
Quarter: 2011Q1

REPORT INFORMATION
  Report Type: 
  Country: None (occurrence: None)
  Receive Date: 20110215
  Receipt Date: 20110209
  Transmission Date: 20110831
  Serious: Yes (Life-Threatening, Hospitalization, Other)
  Sender: FDA-Public Use
  Company Number: PHHY2010AU41428

PATIENT
  Sex: Male

DRUGS (2)
  1. CLOZARIL [Suspect]
     Dosage: UNK
     Route: 048
     Dates: start: 20100623
  2. CLOZARIL [Suspect]
     Dosage: UNK
     Route: 048
     Dates: start: 19961125

REACTIONS (3)
  - PNEUMONIA [None]
  - ALTERED STATE OF CONSCIOUSNESS [None]
  - SEPSIS [None]
